FAERS Safety Report 13015847 (Version 1)
Quarter: 2016Q4

REPORT INFORMATION
  Report Type: Other
  Country: GB (occurrence: GB)
  Receive Date: 20161212
  Receipt Date: 20161212
  Transmission Date: 20170207
  Serious: Yes (Hospitalization)
  Sender: FDA-Public Use
  Company Number: GB-LUPIN PHARMACEUTICALS INC.-E2B_00006752

PATIENT
  Age: 19 Year
  Sex: Male
  Weight: 62.4 kg

DRUGS (3)
  1. CLOZAPINE. [Concomitant]
     Active Substance: CLOZAPINE
     Indication: PRODUCT USED FOR UNKNOWN INDICATION
     Route: 065
  2. QUETIAPINE. [Suspect]
     Active Substance: QUETIAPINE
     Indication: ACUTE PSYCHOSIS
     Route: 048
     Dates: start: 20160420
  3. QUETIAPINE. [Suspect]
     Active Substance: QUETIAPINE
     Dosage: TITRATED DOSE
     Route: 048
     Dates: end: 20160710

REACTIONS (5)
  - Anger [Recovered/Resolved]
  - Abnormal behaviour [Unknown]
  - Somnolence [Unknown]
  - Mood swings [Unknown]
  - Heart rate increased [Unknown]

NARRATIVE: CASE EVENT DATE: 201604
